FAERS Safety Report 8846273 (Version 3)
Quarter: 2012Q4

REPORT INFORMATION
  Report Type: 
  Country: ES (occurrence: ES)
  Receive Date: 20121018
  Receipt Date: 20121030
  Transmission Date: 20130627
  Serious: Yes (Other)
  Sender: FDA-Public Use
  Company Number: ES-AMGEN-ESPSP2012065959

PATIENT
  Age: 40 Year
  Sex: Male
  Weight: 81 kg

DRUGS (2)
  1. ENBREL [Suspect]
     Indication: PSORIATIC ARTHROPATHY
     Dosage: 50 mg, 2x/week
     Dates: start: 20060605, end: 201204
  2. ENBREL [Suspect]
     Dosage: 1 DF, weekly
     Dates: start: 201204

REACTIONS (1)
  - Renal colic [Unknown]
